FAERS Safety Report 12157643 (Version 1)
Quarter: 2016Q1

REPORT INFORMATION
  Report Type: Spontaneous
  Country: US (occurrence: None)
  Receive Date: 20160307
  Receipt Date: 20160307
  Transmission Date: 20160526
  Serious: No
  Sender: FDA-Public Use
  Company Number: None

PATIENT
  Age: 19 Year
  Sex: Male

DRUGS (1)
  1. SIROLIMUS 1MG GREENSTONE [Suspect]
     Active Substance: SIROLIMUS
     Dosage: TWICE DAILY
     Route: 048

REACTIONS (2)
  - Acne [None]
  - Drug dose omission [None]

NARRATIVE: CASE EVENT DATE: 20160302
